FAERS Safety Report 23915739 (Version 1)
Quarter: 2024Q2

REPORT INFORMATION
  Report Type: Spontaneous
  Country: US (occurrence: None)
  Receive Date: 20240529
  Receipt Date: 20240529
  Transmission Date: 20240715
  Serious: Yes (Hospitalization)
  Sender: FDA-Public Use
  Company Number: None

PATIENT
  Sex: Female

DRUGS (6)
  1. OPSUMIT [Suspect]
     Active Substance: MACITENTAN
     Indication: Pulmonary arterial hypertension
     Dosage: FREQUENCY : DAILY;?
     Route: 048
     Dates: start: 201806
  2. HEPARIN L/L FLUSHI- SYR (5ML) [Concomitant]
  3. SODIUM CHLOR (100ML/BAG) [Concomitant]
  4. NORMAL SALINE FLUSH (10 VIL) [Concomitant]
  5. DEVICE [Concomitant]
     Active Substance: DEVICE
  6. EPOPROSTENOL [Concomitant]
     Active Substance: EPOPROSTENOL

REACTIONS (2)
  - Cardiac failure [None]
  - Weight increased [None]
